FAERS Safety Report 5434320-9 (Version None)
Quarter: 2007Q3

REPORT INFORMATION
  Report Type: 
  Country: None (occurrence: None)
  Receive Date: 20070829
  Receipt Date: 20070816
  Transmission Date: 20080115
  Serious: Yes (Death)
  Sender: FDA-Public Use
  Company Number: 160164ISR

PATIENT
  Age: 84 Year
  Sex: Male

DRUGS (1)
  1. SERTRALINE [Suspect]
     Dosage: (100 MG)
     Dates: start: 19930219

REACTIONS (6)
  - GENERAL PHYSICAL HEALTH DETERIORATION [None]
  - HAEMATEMESIS [None]
  - HEPATIC NECROSIS [None]
  - HEPATOTOXICITY [None]
  - NO THERAPEUTIC RESPONSE [None]
  - RESPIRATORY TRACT INFECTION [None]
